FAERS Safety Report 7523713-1 (Version None)
Quarter: 2011Q2

REPORT INFORMATION
  Report Type: 
  Country: None (occurrence: None)
  Receive Date: 20110603
  Receipt Date: 20110525
  Transmission Date: 20111010
  Serious: Yes (Hospitalization)
  Sender: FDA-Public Use
  Company Number: JP-PFIZER INC-2011104592

PATIENT
  Age: 61 Year
  Sex: Male

DRUGS (7)
  1. LASIX [Concomitant]
     Indication: CARDIAC FAILURE
     Dosage: 40MG, 20 MG, 2X/DAY
     Route: 065
     Dates: start: 20091201
  2. METHISTA [Concomitant]
     Dosage: UNK
     Route: 048
  3. LIPITOR [Suspect]
     Indication: HYPERLIPIDAEMIA
     Dosage: 5 MG, 1X/DAY
     Route: 048
     Dates: end: 20110323
  4. ALLOPURINOL [Suspect]
     Indication: HYPERURICAEMIA
     Dosage: 100 MG, 1X/DAY
     Route: 048
     Dates: end: 20110323
  5. SPIRONOLACTONE [Concomitant]
     Indication: CARDIAC FAILURE
     Dosage: 50 MG, 2X/DAY
     Route: 048
     Dates: start: 20091201, end: 20110402
  6. WARFARIN [Concomitant]
     Indication: PULMONARY HYPERTENSION
     Dosage: 4 MG, 1X/DAY
     Route: 048
     Dates: start: 20091201
  7. LANSOPRAZOLE [Suspect]
     Indication: PROPHYLAXIS AGAINST GASTROINTESTINAL ULCER
     Dosage: 15 MG, 1X/DAY
     Route: 048
     Dates: start: 20110310, end: 20110323

REACTIONS (2)
  - PYREXIA [None]
  - GRANULOCYTE COUNT DECREASED [None]
